FAERS Safety Report 4994959-1 (Version None)
Quarter: 2006Q2

REPORT INFORMATION
  Report Type: 
  Country: None (occurrence: None)
  Receive Date: 20060501
  Receipt Date: 20060420
  Transmission Date: 20061013
  Serious: Yes (Hospitalization)
  Sender: FDA-Public Use
  Company Number: CART-10394

PATIENT
  Age: 38 Year
  Sex: Male
  Weight: 84.8226 kg

DRUGS (1)
  1. CARTICEL [Suspect]
     Indication: BONE DISORDER
     Dosage: 1 ONCE IS
     Dates: start: 20010508, end: 20010508

REACTIONS (3)
  - FAILURE OF IMPLANT [None]
  - OSTEOARTHRITIS [None]
  - THERAPY NON-RESPONDER [None]
